FAERS Safety Report 9012033 (Version 1)
Quarter: 2013Q1

REPORT INFORMATION
  Report Type: Spontaneous
  Country: US (occurrence: US)
  Receive Date: 20130114
  Receipt Date: 20130114
  Transmission Date: 20140127
  Serious: Yes (Other)
  Sender: FDA-Public Use
  Company Number: US-BAYER-2013-003895

PATIENT
  Age: 27 Year
  Sex: Female
  Weight: 72.56 kg

DRUGS (6)
  1. YASMIN [Suspect]
  2. OCELLA [Suspect]
  3. EPIPEN [Concomitant]
     Dosage: 0.3 MG, UNK
  4. SERTRALINE HYDROCHLORIDE [Concomitant]
     Dosage: 50 MG, UNK
  5. OXYCODONE W/PARACETAMOL [Concomitant]
     Dosage: 5-325 MG
  6. ZOLOFT [Concomitant]

REACTIONS (1)
  - Deep vein thrombosis [None]
